FAERS Safety Report 7123367-2 (Version None)
Quarter: 2010Q4

REPORT INFORMATION
  Report Type: 
  Country: None (occurrence: None)
  Receive Date: 20101125
  Receipt Date: 20101029
  Transmission Date: 20110411
  Serious: No
  Sender: FDA-Public Use
  Company Number: US-BIOGENIDEC-2010BI041142

PATIENT
  Sex: Female

DRUGS (1)
  1. TYSABRI [Suspect]
     Indication: MULTIPLE SCLEROSIS
     Route: 042
     Dates: start: 20100201

REACTIONS (7)
  - APHASIA [None]
  - COGNITIVE DISORDER [None]
  - COUGH [None]
  - FATIGUE [None]
  - INFECTION [None]
  - MAMMOGRAM ABNORMAL [None]
  - RESTLESS LEGS SYNDROME [None]
